FAERS Safety Report 4816923-5 (Version None)
Quarter: 2005Q4

REPORT INFORMATION
  Report Type: 
  Country: None (occurrence: None)
  Receive Date: 20051101
  Receipt Date: 20050920
  Transmission Date: 20060501
  Serious: Yes (Hospitalization)
  Sender: FDA-Public Use
  Company Number: PHRM2005FR02497

PATIENT
  Age: 68 Year
  Sex: Female
  Weight: 63 kg

DRUGS (4)
  1. GLEEVEC [Suspect]
     Indication: ACUTE LYMPHOCYTIC LEUKAEMIA
     Dosage: 600 MG DAILY
     Route: 048
     Dates: start: 20050502, end: 20050805
  2. PLITICAN [Suspect]
     Route: 048
     Dates: end: 20050805
  3. PURINETHOL [Suspect]
     Dosage: 100 MG DAILY
     Route: 048
     Dates: start: 20050710, end: 20050804
  4. LEVOTHYROX [Concomitant]
     Dosage: 100 UG, QD
     Route: 048

REACTIONS (20)
  - ALANINE AMINOTRANSFERASE INCREASED [None]
  - ANAEMIA [None]
  - ASPARTATE AMINOTRANSFERASE INCREASED [None]
  - ASTHENIA [None]
  - BILIRUBIN CONJUGATED INCREASED [None]
  - BLOOD BILIRUBIN INCREASED [None]
  - BLOOD BILIRUBIN UNCONJUGATED INCREASED [None]
  - BLOOD LACTATE DEHYDROGENASE INCREASED [None]
  - BONE MARROW FAILURE [None]
  - CHOLELITHIASIS [None]
  - CYTOLYTIC HEPATITIS [None]
  - GAMMA-GLUTAMYLTRANSFERASE INCREASED [None]
  - HEPATIC FUNCTION ABNORMAL [None]
  - HEPATOMEGALY [None]
  - JAUNDICE [None]
  - LEUKOPENIA [None]
  - NAUSEA [None]
  - PROTHROMBIN LEVEL DECREASED [None]
  - THROMBOCYTOPENIA [None]
  - VOMITING [None]
